FAERS Safety Report 8789533 (Version 1)
Quarter: 2012Q4

REPORT INFORMATION
  Report Type: Spontaneous
  Country: US (occurrence: None)
  Receive Date: 20120910
  Receipt Date: 20120910
  Transmission Date: 20130627
  Serious: No
  Sender: FDA-Public Use
  Company Number: None

PATIENT
  Age: 34 Year
  Sex: Female
  Weight: 54 kg

DRUGS (1)
  1. FLUCONAZOLE [Suspect]
     Indication: VAGINAL YEAST INFECTION
     Dates: start: 20120904, end: 20120904

REACTIONS (1)
  - Eye pain [None]
